FAERS Safety Report 7321920-4 (Version None)
Quarter: 2011Q1

REPORT INFORMATION
  Report Type: 
  Country: None (occurrence: None)
  Receive Date: 20110216
  Receipt Date: 20110209
  Transmission Date: 20110831
  Serious: Yes (Death)
  Sender: FDA-Public Use
  Company Number: UTC-005173

PATIENT
  Age: 31 Year
  Sex: Female

DRUGS (3)
  1. REVATO (SILDENAFIL CITRATE) [Concomitant]
  2. DIURETICS [Concomitant]
  3. REMODULIN [Suspect]
     Indication: PULMONARY ARTERIAL HYPERTENSION
     Dosage: 77.76 UG/KG (0.054 UG/KG, 1 IN 1 MIN, INTRAVENOUS
     Route: 042
     Dates: start: 20090317

REACTIONS (1)
  - CARDIAC ARREST [None]
